FAERS Safety Report 9426126 (Version 6)
Quarter: 2013Q4

REPORT INFORMATION
  Report Type: Spontaneous
  Country: US (occurrence: US)
  Receive Date: 20130730
  Receipt Date: 20131205
  Transmission Date: 20140711
  Serious: No
  Sender: FDA-Public Use
  Company Number: US-BIOGENIDEC-2013BI068972

PATIENT
  Age: 45 Year
  Sex: Male

DRUGS (4)
  1. TYSABRI [Suspect]
     Indication: MULTIPLE SCLEROSIS
     Route: 042
  2. TYSABRI [Suspect]
     Indication: MULTIPLE SCLEROSIS
     Route: 042
     Dates: start: 20130520, end: 20130924
  3. TECFIDERA [Concomitant]
     Indication: MULTIPLE SCLEROSIS
  4. BENADRYL [Concomitant]
     Indication: PREMEDICATION

REACTIONS (4)
  - Off label use [Unknown]
  - Hypersensitivity [Recovered/Resolved]
  - Blood pressure increased [Unknown]
  - Neutralising antibodies positive [Not Recovered/Not Resolved]
